FAERS Safety Report 8153865-4 (Version None)
Quarter: 2012Q1

REPORT INFORMATION
  Report Type: 
  Country: None (occurrence: None)
  Receive Date: 20120221
  Receipt Date: 20120209
  Transmission Date: 20120608
  Serious: Yes (Other)
  Sender: FDA-Public Use
  Company Number: DE-ELI_LILLY_AND_COMPANY-DE201202002586

PATIENT
  Sex: Female

DRUGS (1)
  1. FORTEO [Suspect]
     Indication: COMMINUTED FRACTURE
     Dosage: UNK, QD
     Route: 058
     Dates: start: 20120124

REACTIONS (11)
  - VOMITING [None]
  - SUICIDAL IDEATION [None]
  - TINNITUS [None]
  - ABDOMINAL PAIN UPPER [None]
  - FATIGUE [None]
  - EAR DISORDER [None]
  - ANGINA PECTORIS [None]
  - INTENTIONAL DRUG MISUSE [None]
  - HEADACHE [None]
  - BACK PAIN [None]
  - MALAISE [None]
